FAERS Safety Report 9468745 (Version 1)
Quarter: 2013Q3

REPORT INFORMATION
  Report Type: Spontaneous
  Country: US (occurrence: US)
  Receive Date: 20130821
  Receipt Date: 20130821
  Transmission Date: 20140515
  Serious: No
  Sender: FDA-Public Use
  Company Number: US-BAXTER-2013BAX031737

PATIENT
  Age: 58 Year
  Sex: Male

DRUGS (2)
  1. TISSEEL VH S/D [Suspect]
     Indication: PTERYGIUM OPERATION
     Route: 065
     Dates: start: 20130807, end: 20130807
  2. TISSEEL VH S/D [Suspect]
     Indication: CORNEAL TRANSPLANT

REACTIONS (2)
  - Graft complication [Recovering/Resolving]
  - Drug effect decreased [Unknown]
